FAERS Safety Report 17072221 (Version 1)
Quarter: 2019Q4

REPORT INFORMATION
  Report Type: Spontaneous
  Country: CA (occurrence: CA)
  Receive Date: 20191125
  Receipt Date: 20191125
  Transmission Date: 20200122
  Serious: Yes (Life-Threatening, Hospitalization, Disabling, Other)
  Sender: FDA-Public Use
  Company Number: CA-OTSUKA-2019_039455

PATIENT
  Age: 12 Day
  Sex: Male
  Weight: 3 kg

DRUGS (4)
  1. ABILIFY [Suspect]
     Active Substance: ARIPIPRAZOLE
     Indication: BIPOLAR DISORDER
     Dosage: (PATIENT^S MOTHER RECEIVED AT 15 MG) DAILY
     Route: 064
  2. SYNTHROID [Concomitant]
     Active Substance: LEVOTHYROXINE SODIUM
     Indication: PRODUCT USED FOR UNKNOWN INDICATION
     Dosage: UNK
     Route: 065
  3. SERTRALINE HYDROCHLORIDE. [Suspect]
     Active Substance: SERTRALINE HYDROCHLORIDE
     Indication: BIPOLAR DISORDER
     Dosage: UNK (PATIENT^S MOTHER RECEIVED AT 100 MG) DAILY
     Route: 064
  4. LAMICTAL [Suspect]
     Active Substance: LAMOTRIGINE
     Indication: BIPOLAR DISORDER
     Dosage: UNK (PATIENT^S MOTHER RECEIVED AT 250 MG) DAILY
     Route: 064

REACTIONS (11)
  - Dehydration [Recovering/Resolving]
  - Crystal urine present [Recovering/Resolving]
  - Foot amputation [Recovering/Resolving]
  - Thrombosis [Recovering/Resolving]
  - Somnolence [Recovering/Resolving]
  - Foetal exposure during pregnancy [Unknown]
  - Skin graft [Recovering/Resolving]
  - Extremity necrosis [Recovering/Resolving]
  - Weight decreased [Recovering/Resolving]
  - Heart rate increased [Recovering/Resolving]
  - Hypernatraemia [Recovering/Resolving]
